FAERS Safety Report 10568987 (Version 1)
Quarter: 2014Q4

REPORT INFORMATION
  Report Type: Spontaneous
  Country: US (occurrence: US)
  Receive Date: 20141106
  Receipt Date: 20141106
  Transmission Date: 20150529
  Serious: No
  Sender: FDA-Public Use
  Company Number: US-TEVA-518769USA

PATIENT
  Sex: Female
  Weight: 47.22 kg

DRUGS (3)
  1. QNASL [Concomitant]
     Active Substance: BECLOMETHASONE DIPROPIONATE
     Indication: HYPERSENSITIVITY
  2. QVAR [Suspect]
     Active Substance: BECLOMETHASONE DIPROPIONATE
     Indication: DRUG THERAPY ENHANCEMENT
     Dosage: 2 PUFFS AS NEEDED FOR 5 DAYAS OR 2V WEEKS IF SICK
     Route: 055
     Dates: start: 2014
  3. QVAR [Suspect]
     Active Substance: BECLOMETHASONE DIPROPIONATE
     Indication: PROPHYLAXIS

REACTIONS (2)
  - Nasal congestion [Recovered/Resolved]
  - Asthma [Recovered/Resolved]
